FAERS Safety Report 19746415 (Version 1)
Quarter: 2021Q3

REPORT INFORMATION
  Report Type: Spontaneous
  Country: JP (occurrence: JP)
  Receive Date: 20210826
  Receipt Date: 20210826
  Transmission Date: 20211014
  Serious: Yes (Other)
  Sender: FDA-Public Use
  Company Number: JP-BRISTOL-MYERS SQUIBB COMPANY-BMS-2021-084056

PATIENT
  Sex: Female

DRUGS (1)
  1. ORENCIA [Suspect]
     Active Substance: ABATACEPT
     Indication: RHEUMATIC DISORDER
     Dosage: UNK UNK, Q4WK, USED FOR ABOUT HALF A YEAR
     Route: 041

REACTIONS (4)
  - Hypertrichosis [Unknown]
  - Thrombosis [Unknown]
  - Blood pressure increased [Not Recovered/Not Resolved]
  - Body temperature increased [Unknown]
